FAERS Safety Report 4431197-5 (Version None)
Quarter: 2004Q3

REPORT INFORMATION
  Report Type: 
  Country: None (occurrence: None)
  Receive Date: 20040817
  Receipt Date: 20040806
  Transmission Date: 20050211
  Serious: Yes (Hospitalization, Other)
  Sender: FDA-Public Use
  Company Number: FI-2004-025213

PATIENT
  Age: 53 Year
  Sex: Female
  Weight: 60 kg

DRUGS (2)
  1. MLS-LUNG-IUS(MLS-LNG-IUS)(LEVONORGESTREL) IUS [Suspect]
     Indication: HORMONE REPLACEMENT THERAPY
     Dosage: 10 UG/DAY, CONT, INTRA-UTERINE
     Route: 015
     Dates: start: 20010511, end: 20040415
  2. CLIMARA [Suspect]
     Indication: HORMONE REPLACEMENT THERAPY
     Dosage: 50 UG/DAY , CONT, TRANSDERMAL
     Route: 062
     Dates: start: 20010511, end: 20040415

REACTIONS (4)
  - BREAST CANCER STAGE II [None]
  - METASTASES TO LYMPH NODES [None]
  - OESTROGEN RECEPTOR ASSAY POSITIVE [None]
  - PROGESTERONE RECEPTOR ASSAY POSITIVE [None]
